FAERS Safety Report 8016311-7 (Version None)
Quarter: 2011Q4

REPORT INFORMATION
  Report Type: 
  Country: None (occurrence: None)
  Receive Date: 20111230
  Receipt Date: 20111227
  Transmission Date: 20120403
  Serious: Yes (Hospitalization, Disabling)
  Sender: FDA-Public Use
  Company Number: US-MERCK-1106USA03368

PATIENT
  Age: 71 Year
  Sex: Female

DRUGS (3)
  1. FOSAMAX [Suspect]
     Indication: OSTEOPENIA
     Route: 048
     Dates: start: 20000601, end: 20100701
  2. CALCIUM (UNSPECIFIED) AND VITAMIN D (UNSPECIFIED) [Concomitant]
     Route: 065
     Dates: start: 20000601
  3. FOSAMAX [Suspect]
     Route: 048
     Dates: start: 20080301, end: 20101201

REACTIONS (6)
  - FEMUR FRACTURE [None]
  - OSTEOPOROSIS [None]
  - ANKLE FRACTURE [None]
  - LOW TURNOVER OSTEOPATHY [None]
  - IMPAIRED HEALING [None]
  - RHEUMATOID ARTHRITIS [None]
